FAERS Safety Report 7356578-1 (Version None)
Quarter: 2011Q1

REPORT INFORMATION
  Report Type: 
  Country: None (occurrence: None)
  Receive Date: 20110316
  Receipt Date: 20110303
  Transmission Date: 20110831
  Serious: Yes (Hospitalization)
  Sender: FDA-Public Use
  Company Number: PHHY2011CH18068

PATIENT
  Age: 69 Year
  Sex: Male

DRUGS (18)
  1. AMLODIPINE [Concomitant]
  2. NEXIUM [Concomitant]
  3. LEUCOVORIN CALCIUM [Concomitant]
  4. VALTREX [Concomitant]
     Dosage: UNK
     Dates: start: 20100601, end: 20110211
  5. URSO FALK [Concomitant]
  6. CIPROFLOXACIN [Concomitant]
  7. VALACICLOVIR [Concomitant]
  8. ASPIRIN [Concomitant]
     Route: 048
  9. VFEND [Concomitant]
     Dosage: UNK
     Dates: start: 20100601, end: 20110211
  10. CIPROFLOX ^APM^ [Concomitant]
  11. IDARUBICIN [Concomitant]
  12. FOLIC ACID [Concomitant]
  13. SIMCORA [Suspect]
     Dosage: 40 MG, QD
     Route: 048
     Dates: start: 20110101, end: 20110211
  14. SANDIMMUNE [Suspect]
     Dosage: 100 MG, BID
     Route: 048
     Dates: start: 20101208, end: 20110213
  15. CELLCEPT [Concomitant]
     Dosage: UNK
     Dates: start: 20110214
  16. CYTARABINE [Concomitant]
  17. ASPIRIN [Concomitant]
     Dosage: 100 MG, QD
     Route: 048
     Dates: start: 20110101
  18. VORICONAZOLE [Concomitant]

REACTIONS (7)
  - HEPATITIS ACUTE [None]
  - ASTHENIA [None]
  - BLOOD CREATINE PHOSPHOKINASE INCREASED [None]
  - MYALGIA [None]
  - NAUSEA [None]
  - RHABDOMYOLYSIS [None]
  - DECREASED APPETITE [None]
